FAERS Safety Report 10744004 (Version 1)
Quarter: 2015Q1

REPORT INFORMATION
  Report Type: Spontaneous
  Country: US (occurrence: US)
  Receive Date: 20150128
  Receipt Date: 20150128
  Transmission Date: 20150721
  Serious: No
  Sender: FDA-Public Use
  Company Number: US-BIOGENIDEC-2015BI008405

PATIENT
  Sex: Female

DRUGS (1)
  1. TECFIDERA [Suspect]
     Active Substance: DIMETHYL FUMARATE
     Indication: MULTIPLE SCLEROSIS
     Route: 048
     Dates: end: 20150111

REACTIONS (5)
  - Muscle spasms [Unknown]
  - Vomiting [Unknown]
  - Diarrhoea [Unknown]
  - Palpitations [Unknown]
  - Hyperhidrosis [Unknown]
